FAERS Safety Report 6878156-0 (Version None)
Quarter: 2010Q2

REPORT INFORMATION
  Report Type: 
  Country: None (occurrence: None)
  Receive Date: 20100623
  Receipt Date: 20081216
  Transmission Date: 20101027
  Serious: No
  Sender: FDA-Public Use
  Company Number: 2008-00151

PATIENT
  Age: 39 Year
  Sex: Male
  Weight: 82.5547 kg

DRUGS (1)
  1. ZICAM COLD REMEDY NASAL GEL [Suspect]
     Dosage: 1 DOSE
     Dates: start: 20081130

REACTIONS (2)
  - AGEUSIA [None]
  - ANOSMIA [None]
